FAERS Safety Report 19812633 (Version 1)
Quarter: 2021Q3

REPORT INFORMATION
  Report Type: Spontaneous
  Country: US (occurrence: US)
  Receive Date: 20210910
  Receipt Date: 20210910
  Transmission Date: 20211014
  Serious: No
  Sender: FDA-Public Use
  Company Number: US-CELLTRION INC.-2018US023002

PATIENT

DRUGS (1)
  1. INFLECTRA [Suspect]
     Active Substance: INFLIXIMAB-DYYB
     Indication: RHEUMATOID ARTHRITIS
     Dosage: 400 MG; 5MG/KG EVERY 8 WEEKS
     Route: 042
     Dates: start: 20180626, end: 20180626

REACTIONS (2)
  - Product dose omission issue [Unknown]
  - Overdose [Unknown]
